FAERS Safety Report 7530051-X (Version None)
Quarter: 2011Q2

REPORT INFORMATION
  Report Type: 
  Country: None (occurrence: None)
  Receive Date: 20110607
  Receipt Date: 20110525
  Transmission Date: 20111010
  Serious: Yes (Other)
  Sender: FDA-Public Use
  Company Number: PHHY2011DE45554

PATIENT
  Age: 70 Year
  Sex: Male

DRUGS (5)
  1. BISOPROLOL FUMARATE [Concomitant]
     Indication: HYPERTENSION
     Dosage: UNK
  2. MOXONIDINE [Concomitant]
     Indication: BLOOD PRESSURE INCREASED
     Dosage: 0.4 MG, UNK
     Dates: start: 20110401, end: 20110501
  3. VALSARTAN  AND HYDROCHLOROTHIAZIDE [Suspect]
     Indication: BLOOD PRESSURE INCREASED
     Dosage: 160 MG OF VALSARTAN AND 25 MG OF HYDROCHLOROTHIAZIDE DAILY
     Dates: end: 20110501
  4. RASILEZ HCT [Suspect]
     Indication: BLOOD PRESSURE INCREASED
     Dosage: 300 MG OF ALISKIREN AND 25 MG OF HYDROCHLOROTHIAZIDE, DAILY
     Dates: start: 20110401, end: 20110501
  5. DIOVAN HCT [Suspect]
     Indication: BLOOD PRESSURE INCREASED
     Dosage: 160 MG OF VALSARTAN AND 25 MG OF HYDROCHLOROTHIAZIDE DAILY

REACTIONS (2)
  - GENERALISED OEDEMA [None]
  - WEIGHT DECREASED [None]
